FAERS Safety Report 9201705 (Version 2)
Quarter: 2013Q4

REPORT INFORMATION
  Report Type: Spontaneous
  Country: US (occurrence: US)
  Receive Date: 20130401
  Receipt Date: 20131010
  Transmission Date: 20140711
  Serious: Yes (Hospitalization, Other)
  Sender: FDA-Public Use
  Company Number: US-ASTRAZENECA-2013SE19611

PATIENT
  Age: 44 Year
  Sex: Female
  Weight: 98.9 kg

DRUGS (16)
  1. NEXIUM [Suspect]
     Indication: GASTROOESOPHAGEAL REFLUX DISEASE
     Route: 048
     Dates: start: 2009
  2. NEXIUM [Suspect]
     Indication: GASTROOESOPHAGEAL REFLUX DISEASE
     Route: 048
     Dates: start: 2010, end: 201303
  3. NEXIUM [Suspect]
     Indication: GASTROOESOPHAGEAL REFLUX DISEASE
     Route: 048
     Dates: start: 201303, end: 20130318
  4. NEXIUM [Suspect]
     Indication: GASTROOESOPHAGEAL REFLUX DISEASE
     Route: 048
     Dates: start: 20130318
  5. WARFARIN [Concomitant]
     Indication: THROMBOSIS
     Dates: start: 201205
  6. WARFARIN [Concomitant]
     Indication: THROMBOSIS
     Dates: start: 201205
  7. MULTIVITAMIN [Concomitant]
  8. FISH OIL [Concomitant]
  9. VITAMIN D [Concomitant]
  10. MIRALAX [Concomitant]
     Dosage: PRN
  11. STOOL SOFTENER [Concomitant]
     Dosage: PRN
  12. CLARITIAN [Concomitant]
     Indication: HYPERSENSITIVITY
     Dosage: PRN
  13. TYLENOL [Concomitant]
     Indication: HEADACHE
     Dosage: PRN
  14. IBUPROFEN [Concomitant]
     Indication: MIGRAINE
     Dosage: PRN
  15. CACIUM [Concomitant]
  16. MYRBETRIQ [Concomitant]
     Indication: BLADDER DISORDER

REACTIONS (17)
  - Thrombosis [Not Recovered/Not Resolved]
  - Pulmonary embolism [Unknown]
  - Polyp [Unknown]
  - Dyspepsia [Unknown]
  - Migraine [Unknown]
  - Pain [Unknown]
  - Throat irritation [Unknown]
  - Chest discomfort [Unknown]
  - Gastrooesophageal reflux disease [Unknown]
  - Fall [Unknown]
  - Pain in extremity [Unknown]
  - Bladder disorder [Unknown]
  - Constipation [Unknown]
  - Diarrhoea [Unknown]
  - Headache [Unknown]
  - Intentional drug misuse [Unknown]
  - Drug dose omission [Unknown]
